FAERS Safety Report 5196674-0 (Version None)
Quarter: 2007Q1

REPORT INFORMATION
  Report Type: 
  Country: None (occurrence: None)
  Receive Date: 20070103
  Receipt Date: 20061227
  Transmission Date: 20070707
  Serious: Yes (Life-Threatening, Hospitalization)
  Sender: FDA-Public Use
  Company Number: PHBS2006JP20083

PATIENT
  Age: 34 Year
  Sex: Male

DRUGS (1)
  1. TEGRETOL [Suspect]
     Indication: EPILEPSY
     Dosage: 400 MG/DAY
     Route: 048
     Dates: start: 20061201, end: 20061203

REACTIONS (3)
  - IMPLANTABLE DEFIBRILLATOR INSERTION [None]
  - VENTRICULAR FLUTTER [None]
  - VENTRICULAR TACHYCARDIA [None]
